FAERS Safety Report 6742044-0 (Version None)
Quarter: 2010Q2

REPORT INFORMATION
  Report Type: 
  Country: None (occurrence: None)
  Receive Date: 20100526
  Receipt Date: 20100518
  Transmission Date: 20101027
  Serious: Yes (Hospitalization)
  Sender: FDA-Public Use
  Company Number: US-ASTRAZENECA-2010SE22680

PATIENT
  Age: 633 Month
  Sex: Female
  Weight: 73.9 kg

DRUGS (7)
  1. SEROQUEL [Suspect]
     Indication: BIPOLAR DISORDER
     Route: 048
     Dates: end: 20070101
  2. SEROQUEL [Suspect]
     Indication: PSYCHOTIC DISORDER
     Route: 048
     Dates: end: 20070101
  3. SEROQUEL [Suspect]
     Route: 048
     Dates: start: 20070101
  4. SEROQUEL [Suspect]
     Route: 048
     Dates: start: 20070101
  5. METOPROLOL [Concomitant]
     Indication: HYPERTENSION
  6. THYROID MEDICATION [Concomitant]
     Indication: THYROID DISORDER
  7. XANAX [Concomitant]

REACTIONS (4)
  - CATARACT [None]
  - LIVER DISORDER [None]
  - RENAL DISORDER [None]
  - WEIGHT INCREASED [None]
